FAERS Safety Report 7118328-3 (Version None)
Quarter: 2010Q4

REPORT INFORMATION
  Report Type: 
  Country: None (occurrence: None)
  Receive Date: 20101123
  Receipt Date: 20101115
  Transmission Date: 20110411
  Serious: Yes (Other)
  Sender: FDA-Public Use
  Company Number: PHHY2010IT76175

PATIENT
  Sex: Male

DRUGS (6)
  1. STALEVO 100 [Suspect]
     Indication: PARKINSON'S DISEASE
     Dosage: 225MG/56.25MG/400MG, 2  POSOLOGIC UNITS
     Route: 048
     Dates: start: 20101025, end: 20101027
  2. STALEVO 100 [Suspect]
     Dosage: 100MG/25MG/200MG, 2  POSOLOGIC UNITS
     Dates: start: 20101025, end: 20101027
  3. MIRAPEXIN [Concomitant]
     Dosage: 3.15MG, ONE POSOLOGIC UNIT FOR 12 YEARS
     Route: 048
  4. AMANTADINE HCL [Concomitant]
     Dosage: 100MG, 2 POSOLOGIC UNITS,FOR 12 YEARS
     Route: 048
  5. LACIPIL [Concomitant]
     Dosage: 4MG,1 POSOLOGIC UNIT
     Route: 048
  6. DICLOREUM [Concomitant]
     Dosage: 150 MG, 1 POSOLOGIC UNIT, 16 DAYS
     Route: 048

REACTIONS (1)
  - PARALYSIS [None]
